FAERS Safety Report 10548414 (Version 2)
Quarter: 2014Q4

REPORT INFORMATION
  Report Type: Spontaneous
  Country: US (occurrence: US)
  Receive Date: 20141028
  Receipt Date: 20141119
  Transmission Date: 20150529
  Serious: Yes (Hospitalization, Other)
  Sender: FDA-Public Use
  Company Number: US-JNJFOC-20141010389

PATIENT
  Age: 14 Year
  Sex: Female
  Weight: 56.25 kg

DRUGS (4)
  1. PROAIR HFA [Concomitant]
     Active Substance: ALBUTEROL SULFATE
     Indication: ASTHMA EXERCISE INDUCED
     Route: 065
  2. ORTHO EVRA [Suspect]
     Active Substance: ETHINYL ESTRADIOL\NORELGESTROMIN
     Indication: MENSTRUATION IRREGULAR
     Route: 062
  3. ORTHO EVRA [Suspect]
     Active Substance: ETHINYL ESTRADIOL\NORELGESTROMIN
     Indication: CONTRACEPTION
     Route: 062
  4. XULANE [Suspect]
     Active Substance: ETHINYL ESTRADIOL\NORELGESTROMIN
     Indication: PRODUCT USED FOR UNKNOWN INDICATION
     Route: 065
     Dates: start: 20140608

REACTIONS (9)
  - Inappropriate schedule of drug administration [Unknown]
  - Clostridium difficile infection [Unknown]
  - Rotavirus infection [Unknown]
  - Product use issue [Not Recovered/Not Resolved]
  - Inappropriate schedule of drug administration [Unknown]
  - Cystitis [Recovered/Resolved]
  - Product packaging quantity issue [Unknown]
  - Hospitalisation [Unknown]
  - Drug prescribing error [Not Recovered/Not Resolved]

NARRATIVE: CASE EVENT DATE: 201312
